FAERS Safety Report 21017574 (Version 1)
Quarter: 2022Q2

REPORT INFORMATION
  Report Type: Spontaneous
  Country: US (occurrence: None)
  Receive Date: 20220627
  Receipt Date: 20220627
  Transmission Date: 20220720
  Serious: Yes (Other)
  Sender: FDA-Public Use
  Company Number: None

PATIENT
  Age: 62 Year
  Sex: Male
  Weight: 86 kg

DRUGS (2)
  1. HEPARIN [Suspect]
     Active Substance: HEPARIN SODIUM
     Indication: Pulmonary embolism
     Dosage: OTHER FREQUENCY : HOUR;?
     Route: 041
     Dates: start: 20220627
  2. HEPARIN [Suspect]
     Active Substance: HEPARIN SODIUM
     Indication: Pulmonary embolism
     Dosage: OTHER FREQUENCY : HOUR;?
     Route: 041
     Dates: start: 20220627

REACTIONS (4)
  - Activated partial thromboplastin time shortened [None]
  - Product quality issue [None]
  - Therapeutic response decreased [None]
  - Manufacturing production issue [None]

NARRATIVE: CASE EVENT DATE: 20220627
